FAERS Safety Report 9046245 (Version 1)
Quarter: 2013Q1

REPORT INFORMATION
  Report Type: Spontaneous
  Country: US (occurrence: None)
  Receive Date: 20130128
  Receipt Date: 20130128
  Transmission Date: 20140127
  Serious: Yes (Other)
  Sender: FDA-Public Use
  Company Number: None

PATIENT
  Age: 80 Year
  Sex: Female

DRUGS (1)
  1. ENBREL 25 MG / 0.5 ML SRYINGE IMMUNEX CORP [Suspect]
     Indication: RHEUMATOID ARTHRITIS
     Dosage: 25 MG SYRINGE  TWICE WEEKLY  SQ?4/23/12 - 1/10/13
     Route: 058
     Dates: start: 20120423, end: 20130110

REACTIONS (2)
  - Localised infection [None]
  - Fungal infection [None]
